FAERS Safety Report 14405213 (Version 1)
Quarter: 2018Q1

REPORT INFORMATION
  Report Type: Spontaneous
  Country: US (occurrence: US)
  Receive Date: 20180118
  Receipt Date: 20180118
  Transmission Date: 20180509
  Serious: Yes (Other)
  Sender: FDA-Public Use
  Company Number: US-CIPLA (EU) LIMITED-2018US00923

PATIENT

DRUGS (24)
  1. CLOBAZAM [Suspect]
     Active Substance: CLOBAZAM
     Indication: GENERALISED TONIC-CLONIC SEIZURE
  2. CLOBAZAM [Suspect]
     Active Substance: CLOBAZAM
     Indication: ATONIC SEIZURES
  3. LEVETIRACETAM. [Suspect]
     Active Substance: LEVETIRACETAM
     Indication: INFANTILE SPASMS
     Dosage: UNK
     Route: 065
  4. LEVETIRACETAM. [Suspect]
     Active Substance: LEVETIRACETAM
     Indication: GENERALISED TONIC-CLONIC SEIZURE
  5. LAMOTRIGINE. [Suspect]
     Active Substance: LAMOTRIGINE
     Indication: ATONIC SEIZURES
  6. SODIUM VALPROATE [Suspect]
     Active Substance: VALPROATE SODIUM
     Indication: GENERALISED TONIC-CLONIC SEIZURE
  7. SODIUM VALPROATE [Suspect]
     Active Substance: VALPROATE SODIUM
     Indication: ATONIC SEIZURES
  8. LEVETIRACETAM. [Suspect]
     Active Substance: LEVETIRACETAM
     Indication: PETIT MAL EPILEPSY
  9. LAMOTRIGINE. [Suspect]
     Active Substance: LAMOTRIGINE
     Indication: PETIT MAL EPILEPSY
  10. ZONISAMIDE. [Suspect]
     Active Substance: ZONISAMIDE
     Indication: GENERALISED TONIC-CLONIC SEIZURE
  11. RUFINAMIDE [Suspect]
     Active Substance: RUFINAMIDE
     Indication: INFANTILE SPASMS
     Dosage: UNK
     Route: 065
  12. LEVETIRACETAM. [Suspect]
     Active Substance: LEVETIRACETAM
     Indication: ATONIC SEIZURES
  13. LAMOTRIGINE. [Suspect]
     Active Substance: LAMOTRIGINE
     Indication: GENERALISED TONIC-CLONIC SEIZURE
  14. ZONISAMIDE. [Suspect]
     Active Substance: ZONISAMIDE
     Indication: INFANTILE SPASMS
     Dosage: UNK
     Route: 065
  15. SODIUM VALPROATE [Suspect]
     Active Substance: VALPROATE SODIUM
     Indication: INFANTILE SPASMS
     Dosage: UNK
     Route: 065
  16. SODIUM VALPROATE [Suspect]
     Active Substance: VALPROATE SODIUM
     Indication: PETIT MAL EPILEPSY
  17. CLOBAZAM [Suspect]
     Active Substance: CLOBAZAM
     Indication: INFANTILE SPASMS
     Dosage: UNK
     Route: 065
  18. RUFINAMIDE [Suspect]
     Active Substance: RUFINAMIDE
     Indication: PETIT MAL EPILEPSY
  19. RUFINAMIDE [Suspect]
     Active Substance: RUFINAMIDE
     Indication: GENERALISED TONIC-CLONIC SEIZURE
  20. RUFINAMIDE [Suspect]
     Active Substance: RUFINAMIDE
     Indication: ATONIC SEIZURES
  21. LAMOTRIGINE. [Suspect]
     Active Substance: LAMOTRIGINE
     Indication: INFANTILE SPASMS
     Dosage: UNK
     Route: 065
  22. ZONISAMIDE. [Suspect]
     Active Substance: ZONISAMIDE
     Indication: PETIT MAL EPILEPSY
  23. ZONISAMIDE. [Suspect]
     Active Substance: ZONISAMIDE
     Indication: ATONIC SEIZURES
  24. CLOBAZAM [Suspect]
     Active Substance: CLOBAZAM
     Indication: PETIT MAL EPILEPSY

REACTIONS (1)
  - Epilepsy [Unknown]
